FAERS Safety Report 15795809 (Version 1)
Quarter: 2019Q1

REPORT INFORMATION
  Report Type: Spontaneous
  Country: US (occurrence: US)
  Receive Date: 20190107
  Receipt Date: 20190107
  Transmission Date: 20190417
  Serious: Yes (Other)
  Sender: FDA-Public Use
  Company Number: US-MYLANLABS-2018M1098234

PATIENT
  Age: 76 Year
  Sex: Female

DRUGS (24)
  1. HYDROXYCHLOROQUINE [Suspect]
     Active Substance: HYDROXYCHLOROQUINE
     Indication: OESOPHAGEAL MOTILITY DISORDER
  2. HYDROXYCHLOROQUINE [Suspect]
     Active Substance: HYDROXYCHLOROQUINE
     Indication: SJOGREN^S SYNDROME
  3. PREDNISONE. [Suspect]
     Active Substance: PREDNISONE
     Indication: POLYMYOSITIS
     Route: 065
  4. AZATHIOPRINE. [Concomitant]
     Active Substance: AZATHIOPRINE
     Indication: PRIMARY BILIARY CHOLANGITIS
  5. AZATHIOPRINE. [Concomitant]
     Active Substance: AZATHIOPRINE
     Indication: SCLERODACTYLIA
  6. HYDROXYCHLOROQUINE [Suspect]
     Active Substance: HYDROXYCHLOROQUINE
     Indication: POLYMYOSITIS
     Route: 065
  7. HYDROXYCHLOROQUINE [Suspect]
     Active Substance: HYDROXYCHLOROQUINE
     Indication: PRIMARY BILIARY CHOLANGITIS
  8. HYDROXYCHLOROQUINE [Suspect]
     Active Substance: HYDROXYCHLOROQUINE
     Indication: RAYNAUD^S PHENOMENON
  9. PREDNISONE. [Suspect]
     Active Substance: PREDNISONE
     Indication: CREST SYNDROME
  10. PREDNISONE. [Suspect]
     Active Substance: PREDNISONE
     Indication: SCLERODACTYLIA
  11. AZATHIOPRINE. [Concomitant]
     Active Substance: AZATHIOPRINE
     Indication: CREST SYNDROME
  12. AZATHIOPRINE. [Concomitant]
     Active Substance: AZATHIOPRINE
     Indication: SJOGREN^S SYNDROME
  13. HYDROXYCHLOROQUINE [Suspect]
     Active Substance: HYDROXYCHLOROQUINE
     Indication: CALCINOSIS
  14. HYDROXYCHLOROQUINE [Suspect]
     Active Substance: HYDROXYCHLOROQUINE
     Indication: CREST SYNDROME
  15. HYDROXYCHLOROQUINE [Suspect]
     Active Substance: HYDROXYCHLOROQUINE
     Indication: SCLERODACTYLIA
  16. PREDNISONE. [Suspect]
     Active Substance: PREDNISONE
     Indication: OESOPHAGEAL MOTILITY DISORDER
  17. PREDNISONE. [Suspect]
     Active Substance: PREDNISONE
     Indication: RAYNAUD^S PHENOMENON
  18. AZATHIOPRINE. [Concomitant]
     Active Substance: AZATHIOPRINE
     Indication: CALCINOSIS
  19. PREDNISONE. [Suspect]
     Active Substance: PREDNISONE
     Indication: SJOGREN^S SYNDROME
  20. AZATHIOPRINE. [Concomitant]
     Active Substance: AZATHIOPRINE
     Indication: OESOPHAGEAL MOTILITY DISORDER
  21. PREDNISONE. [Suspect]
     Active Substance: PREDNISONE
     Indication: CALCINOSIS
  22. PREDNISONE. [Suspect]
     Active Substance: PREDNISONE
     Indication: PRIMARY BILIARY CHOLANGITIS
  23. AZATHIOPRINE. [Concomitant]
     Active Substance: AZATHIOPRINE
     Indication: POLYMYOSITIS
     Route: 065
  24. AZATHIOPRINE. [Concomitant]
     Active Substance: AZATHIOPRINE
     Indication: RAYNAUD^S PHENOMENON

REACTIONS (4)
  - Acute motor-sensory axonal neuropathy [Unknown]
  - Muscle atrophy [Unknown]
  - Myopathy [Unknown]
  - Myopathy toxic [Unknown]
